FAERS Safety Report 22521919 (Version 4)
Quarter: 2023Q2

REPORT INFORMATION
  Report Type: Spontaneous
  Country: US (occurrence: US)
  Receive Date: 20230605
  Receipt Date: 20230626
  Transmission Date: 20230722
  Serious: No
  Sender: FDA-Public Use
  Company Number: US-002147023-NVSC2023US125440

PATIENT
  Sex: Male

DRUGS (1)
  1. VOTRIENT [Suspect]
     Active Substance: PAZOPANIB HYDROCHLORIDE
     Indication: Neoplasm malignant
     Dosage: 800 MG, QD (EVERY 28 DAYS)
     Route: 048
     Dates: start: 202305

REACTIONS (4)
  - Fatigue [Unknown]
  - Stomatitis [Unknown]
  - Asthenia [Unknown]
  - Off label use [Unknown]
